FAERS Safety Report 11095937 (Version 1)
Quarter: 2015Q2

REPORT INFORMATION
  Report Type: Spontaneous
  Country: GB (occurrence: None)
  Receive Date: 20150505
  Receipt Date: 20150505
  Transmission Date: 20150821
  Serious: Yes (Disabling)
  Sender: FDA-Public Use
  Company Number: 20151362

PATIENT
  Sex: Female

DRUGS (1)
  1. METOJECT PEN (METHOTREXATE SODIUM) [Suspect]
     Active Substance: METHOTREXATE
     Dosage: SOLUTION FOR INJECTION IN PRE-FILLED PEN

REACTIONS (1)
  - Upper limb fracture [None]
